FAERS Safety Report 9875024 (Version 1)
Quarter: 2014Q1

REPORT INFORMATION
  Report Type: Spontaneous
  Country: US (occurrence: None)
  Receive Date: 20140205
  Receipt Date: 20140205
  Transmission Date: 20141002
  Serious: Yes (Disabling)
  Sender: FDA-Public Use
  Company Number: None

PATIENT
  Age: 48 Year
  Sex: Male
  Weight: 77.11 kg

DRUGS (1)
  1. DOXYCYCLINE 100MG WATSON LABS [Suspect]
     Indication: PROPHYLAXIS
     Route: 048
     Dates: start: 20140127, end: 20140203

REACTIONS (3)
  - Dyspepsia [None]
  - Oesophageal ulcer [None]
  - Oesophageal irritation [None]
